FAERS Safety Report 16202052 (Version 1)
Quarter: 2019Q2

REPORT INFORMATION
  Report Type: Spontaneous
  Country: FR (occurrence: FR)
  Receive Date: 20190416
  Receipt Date: 20190416
  Transmission Date: 20190711
  Serious: Yes (Other)
  Sender: FDA-Public Use
  Company Number: FR-MYLANLABS-2019M1034039

PATIENT
  Age: 54 Year
  Sex: Female

DRUGS (4)
  1. FRAGMINE [Concomitant]
     Active Substance: DALTEPARIN SODIUM
     Dosage: UNK
  2. KEPPRA [Concomitant]
     Active Substance: LEVETIRACETAM
     Dosage: UNK
  3. AMOXICILLIN. [Suspect]
     Active Substance: AMOXICILLIN
     Indication: BACTERIAL INFECTION
     Dosage: UNK
     Dates: start: 20151208, end: 20160104
  4. VANCOMYCIN [Suspect]
     Active Substance: VANCOMYCIN
     Indication: BACTERIAL INFECTION
     Dosage: UNK
     Route: 042
     Dates: start: 20151208, end: 20160104

REACTIONS (1)
  - Agranulocytosis [Recovered/Resolved]

NARRATIVE: CASE EVENT DATE: 20160104
